FAERS Safety Report 9483847 (Version 1)
Quarter: 2013Q3

REPORT INFORMATION
  Report Type: Report from Study
  Country: US (occurrence: US)
  Receive Date: 20130828
  Receipt Date: 20130828
  Transmission Date: 20140515
  Serious: Yes (Other)
  Sender: FDA-Public Use
  Company Number: US-ABBOTT-13P-163-1135718-00

PATIENT
  Age: 37 Year
  Sex: Female
  Weight: 79.45 kg

DRUGS (2)
  1. HUMIRA [Suspect]
     Indication: PSORIASIS
     Dates: start: 20101203
  2. METHOTREXATE [Concomitant]
     Indication: PSORIASIS

REACTIONS (2)
  - Breast calcifications [Not Recovered/Not Resolved]
  - Breast cancer [Not Recovered/Not Resolved]
